FAERS Safety Report 4682204-6 (Version None)
Quarter: 2005Q2

REPORT INFORMATION
  Report Type: 
  Country: None (occurrence: None)
  Receive Date: 20050531
  Receipt Date: 20050315
  Transmission Date: 20051028
  Serious: No
  Sender: FDA-Public Use
  Company Number: 2004BI001894

PATIENT
  Age: 26 Year
  Sex: Male

DRUGS (2)
  1. AMEVIVE [Suspect]
     Indication: PSORIASIS
     Dosage: 15 MG; QW; IM
     Route: 030
     Dates: start: 20041102, end: 20041126
  2. ULTRAVATE [Concomitant]

REACTIONS (1)
  - CD4 LYMPHOCYTES DECREASED [None]
